FAERS Safety Report 7071446-0 (Version None)
Quarter: 2010Q4

REPORT INFORMATION
  Report Type: 
  Country: None (occurrence: None)
  Receive Date: 20101029
  Receipt Date: 20090902
  Transmission Date: 20110411
  Serious: No
  Sender: FDA-Public Use
  Company Number: A0805680A

PATIENT
  Age: 74 Year
  Sex: Female

DRUGS (7)
  1. ADVAIR DISKUS 100/50 [Suspect]
     Dosage: 1PUFF TWICE PER DAY
     Route: 055
     Dates: start: 20090901
  2. SYNTHROID [Concomitant]
  3. DONNATAL [Concomitant]
  4. ZIAC [Concomitant]
  5. PAXIL [Concomitant]
  6. FENTANYL-75 [Concomitant]
  7. DIAZEPAM [Concomitant]

REACTIONS (3)
  - DYSPHONIA [None]
  - NERVOUSNESS [None]
  - TREMOR [None]
